FAERS Safety Report 9791188 (Version 1)
Quarter: 2013Q4

REPORT INFORMATION
  Report Type: Other
  Country: GB (occurrence: GB)
  Receive Date: 20131231
  Receipt Date: 20131231
  Transmission Date: 20140711
  Serious: Yes (Hospitalization, Disabling)
  Sender: FDA-Public Use
  Company Number: GB-TAKEDA-2013TJP004106

PATIENT
  Sex: 0

DRUGS (7)
  1. LANSOPRAZOLE [Suspect]
     Indication: PRODUCT USED FOR UNKNOWN INDICATION
     Dosage: UNK
     Route: 065
  2. CO-TRIMOXAZOLE [Suspect]
     Indication: PRODUCT USED FOR UNKNOWN INDICATION
     Dosage: 80MG/400MG, TWICE DAILY ON MONDAY, WEDNESDAY AND FRIDAY
     Route: 065
     Dates: start: 20111003, end: 20111008
  3. TRAMADOL [Concomitant]
  4. SENNA                              /00142201/ [Concomitant]
     Dosage: UNK
  5. PREDNISOLONE [Concomitant]
  6. PRAVASTATIN [Concomitant]
  7. FLUCONAZOLE [Concomitant]
     Dosage: UNK
     Dates: start: 20111009, end: 20111028

REACTIONS (1)
  - Clostridium difficile infection [Recovered/Resolved]
